FAERS Safety Report 7648457-7 (Version None)
Quarter: 2011Q3

REPORT INFORMATION
  Report Type: 
  Country: None (occurrence: None)
  Receive Date: 20110801
  Receipt Date: 20110721
  Transmission Date: 20111222
  Serious: Yes (Hospitalization)
  Sender: FDA-Public Use
  Company Number: JP-EISAI INC-E2090-01706-SPO-JP

PATIENT
  Age: 15 Year
  Sex: Male

DRUGS (2)
  1. ANTIBIOTIC UNSPECIFIED [Concomitant]
  2. ZONISAMIDE [Suspect]
     Indication: EPILEPSY
     Dosage: UNKNOWN

REACTIONS (1)
  - DRUG RASH WITH EOSINOPHILIA AND SYSTEMIC SYMPTOMS [None]
